FAERS Safety Report 9231706 (Version 6)
Quarter: 2015Q1

REPORT INFORMATION
  Report Type: Spontaneous
  Country: US (occurrence: US)
  Receive Date: 20130415
  Receipt Date: 20150304
  Transmission Date: 20150721
  Serious: No
  Sender: FDA-Public Use
  Company Number: US-009507513-1304USA004480

PATIENT
  Sex: Male
  Weight: 86.17 kg

DRUGS (4)
  1. FINASTERIDE. [Suspect]
     Active Substance: FINASTERIDE
     Dosage: 5 MG, UNK
     Route: 048
     Dates: start: 201107
  2. FINASTERIDE. [Suspect]
     Active Substance: FINASTERIDE
     Indication: ALOPECIA
     Dosage: 5 MG, UNK
     Route: 048
     Dates: start: 20090215, end: 201104
  3. FINASTERIDE. [Suspect]
     Active Substance: FINASTERIDE
     Indication: ALOPECIA
     Dosage: 5 MG,  1/4 TAB QD
     Route: 048
     Dates: start: 20090327, end: 20110720
  4. PROPECIA [Suspect]
     Active Substance: FINASTERIDE
     Indication: ANDROGENETIC ALOPECIA
     Dosage: 1 MG, QD
     Route: 048
     Dates: start: 20100302

REACTIONS (11)
  - Sexual dysfunction [Not Recovered/Not Resolved]
  - VIIth nerve paralysis [Unknown]
  - Drug administration error [Unknown]
  - Pain in extremity [Unknown]
  - Weight increased [Unknown]
  - Organic erectile dysfunction [Unknown]
  - High risk sexual behaviour [Not Recovered/Not Resolved]
  - Drug hypersensitivity [Unknown]
  - Anxiety [Not Recovered/Not Resolved]
  - Cognitive disorder [Not Recovered/Not Resolved]
  - Wrong technique in drug usage process [Unknown]

NARRATIVE: CASE EVENT DATE: 20090327
